FAERS Safety Report 12207122 (Version 1)
Quarter: 2016Q1

REPORT INFORMATION
  Report Type: Spontaneous
  Country: US (occurrence: US)
  Receive Date: 20160324
  Receipt Date: 20160324
  Transmission Date: 20160526
  Serious: No
  Sender: FDA-Public Use
  Company Number: US-JNJFOC-20120205590

PATIENT
  Age: 49 Year
  Sex: Female
  Weight: 88.91 kg

DRUGS (5)
  1. AMBIEN [Concomitant]
     Active Substance: ZOLPIDEM TARTRATE
     Indication: SLEEP DISORDER THERAPY
     Dates: start: 2009
  2. CYCLOBENZAPRINE [Suspect]
     Active Substance: CYCLOBENZAPRINE
     Indication: RHEUMATOID ARTHRITIS
     Route: 048
     Dates: start: 2010
  3. PREMPRO [Concomitant]
     Active Substance: ESTROGENS, CONJUGATED\MEDROXYPROGESTERONE ACETATE
     Indication: HORMONE REPLACEMENT THERAPY
     Dates: start: 2010
  4. TRAMADOL. [Suspect]
     Active Substance: TRAMADOL
     Indication: RHEUMATOID ARTHRITIS
     Route: 048
     Dates: start: 2010
  5. REMICADE [Suspect]
     Active Substance: INFLIXIMAB
     Indication: RHEUMATOID ARTHRITIS
     Route: 042
     Dates: start: 20120202

REACTIONS (7)
  - Chills [Recovered/Resolved]
  - Feeling abnormal [Recovered/Resolved]
  - Sunburn [Recovered/Resolved]
  - Malaise [Recovered/Resolved]
  - Flushing [Not Recovered/Not Resolved]
  - Dizziness [Recovered/Resolved]
  - Feeling cold [Recovered/Resolved]

NARRATIVE: CASE EVENT DATE: 20120202
